FAERS Safety Report 21232605 (Version 1)
Quarter: 2022Q3

REPORT INFORMATION
  Report Type: Other
  Country: GB (occurrence: None)
  Receive Date: 20220819
  Receipt Date: 20220819
  Transmission Date: 20221027
  Serious: Yes (Hospitalization)
  Sender: FDA-Public Use
  Company Number: GB-ROCHE-2636571

PATIENT
  Sex: Female

DRUGS (20)
  1. TOCILIZUMAB [Suspect]
     Active Substance: TOCILIZUMAB
     Indication: Rheumatoid arthritis
     Route: 058
     Dates: start: 20200402
  2. TOCILIZUMAB [Suspect]
     Active Substance: TOCILIZUMAB
     Route: 058
     Dates: start: 20200520
  3. ALBUTEROL [Concomitant]
     Active Substance: ALBUTEROL
  4. LAMOTRIGINE [Concomitant]
     Active Substance: LAMOTRIGINE
  5. BENZYDAMINE [Concomitant]
     Active Substance: BENZYDAMINE
  6. PREDNISOLONE [Concomitant]
     Active Substance: PREDNISOLONE
  7. SERTRALINE [Concomitant]
     Active Substance: SERTRALINE HYDROCHLORIDE
  8. QUETIAPINE [Concomitant]
     Active Substance: QUETIAPINE
  9. MICONAZOLE [Concomitant]
     Active Substance: MICONAZOLE
  10. CLINITAS [Concomitant]
  11. ACETAMINOPHEN [Concomitant]
     Active Substance: ACETAMINOPHEN
  12. DOXYCYCLINE [Concomitant]
     Active Substance: DOXYCYCLINE
  13. AZITHROMYCIN [Concomitant]
     Active Substance: AZITHROMYCIN
  14. NACSYS [Concomitant]
  15. TRELEGY ELLIPTA [Concomitant]
     Active Substance: FLUTICASONE FUROATE\UMECLIDINIUM BROMIDE\VILANTEROL TRIFENATATE
  16. CARBOCYSTEINE [Concomitant]
     Active Substance: CARBOCYSTEINE
  17. MIRABEGRON [Concomitant]
     Active Substance: MIRABEGRON
  18. SODIUM CHLORIDE [Concomitant]
     Active Substance: SODIUM CHLORIDE
  19. ESOMEPRAZOLE [Concomitant]
     Active Substance: ESOMEPRAZOLE
  20. DOXYCYCLINE [Concomitant]
     Active Substance: DOXYCYCLINE

REACTIONS (10)
  - Pneumonia [Unknown]
  - Blood sodium decreased [Unknown]
  - Dyspnoea [Unknown]
  - Malaise [Unknown]
  - Blood iron decreased [Unknown]
  - Blood sodium decreased [Unknown]
  - Hypersensitivity [Unknown]
  - Pain [Unknown]
  - Drug ineffective [Unknown]
  - Lung disorder [Unknown]

NARRATIVE: CASE EVENT DATE: 20200601
